FAERS Safety Report 5808268-1 (Version None)
Quarter: 2008Q3

REPORT INFORMATION
  Report Type: 
  Country: None (occurrence: None)
  Receive Date: 20080709
  Receipt Date: 20080630
  Transmission Date: 20090109
  Serious: Yes (Life-Threatening)
  Sender: FDA-Public Use
  Company Number: GXKR2008US05997

PATIENT
  Age: 81 Year
  Sex: Female

DRUGS (1)
  1. NAFCILLIN (NGX) (NAFCILLIN) UNKNOWN [Suspect]
     Indication: STAPHYLOCOCCAL SEPSIS
     Dosage: 12 G/DAY

REACTIONS (1)
  - HYPOKALAEMIA [None]
